FAERS Safety Report 13352111 (Version 1)
Quarter: 2017Q1

REPORT INFORMATION
  Report Type: Spontaneous
  Country: US (occurrence: US)
  Receive Date: 20170320
  Receipt Date: 20170320
  Transmission Date: 20170429
  Serious: No
  Sender: FDA-Public Use
  Company Number: US-SA-2016SA120200

PATIENT
  Age: 25 Year
  Sex: Female

DRUGS (1)
  1. NASACORT ALLERGY 24HR [Suspect]
     Active Substance: TRIAMCINOLONE ACETONIDE
     Indication: MULTIPLE ALLERGIES
     Dosage: DOSE: 2 SPRAYS.?FREQUENCY: EACH NOSTRIL QD.
     Route: 065
     Dates: start: 20160620

REACTIONS (1)
  - Rash [Recovering/Resolving]
